FAERS Safety Report 13287575 (Version 1)
Quarter: 2017Q1

REPORT INFORMATION
  Report Type: Spontaneous
  Country: US (occurrence: US)
  Receive Date: 20170302
  Receipt Date: 20170302
  Transmission Date: 20170428
  Serious: No
  Sender: FDA-Public Use
  Company Number: PHEH2005US07932

PATIENT
  Sex: Female

DRUGS (4)
  1. NATEGLINIDE. [Suspect]
     Active Substance: NATEGLINIDE
     Indication: PRODUCT USED FOR UNKNOWN INDICATION
     Route: 065
  2. STARLIX [Suspect]
     Active Substance: NATEGLINIDE
     Indication: HYPERGLYCAEMIA
     Dosage: 1 DF, TID (ONE TAB, TID)
     Route: 048
     Dates: start: 1996
  3. STARLIX [Suspect]
     Active Substance: NATEGLINIDE
     Dosage: 4 DF, QD (4 TABS, QD)
     Route: 048
  4. LEVEMIR [Concomitant]
     Active Substance: INSULIN DETEMIR
     Indication: PRODUCT USED FOR UNKNOWN INDICATION
     Route: 065

REACTIONS (2)
  - Urinary tract infection [Unknown]
  - Blood glucose increased [Recovered/Resolved]
